FAERS Safety Report 23015607 (Version 4)
Quarter: 2023Q4

REPORT INFORMATION
  Report Type: Report from Study
  Country: US (occurrence: US)
  Receive Date: 20231002
  Receipt Date: 20231129
  Transmission Date: 20240109
  Serious: Yes (Hospitalization)
  Sender: FDA-Public Use
  Company Number: US-BAYER-2023A123797

PATIENT
  Age: 64 Year
  Sex: Male

DRUGS (2)
  1. DAROLUTAMIDE [Suspect]
     Active Substance: DAROLUTAMIDE
     Indication: Hormone-refractory prostate cancer
     Dosage: 600 MG
     Route: 048
     Dates: start: 20230705, end: 20230827
  2. DAROLUTAMIDE [Suspect]
     Active Substance: DAROLUTAMIDE
     Indication: Hormone-refractory prostate cancer
     Dosage: 600 MG
     Route: 048
     Dates: start: 20230629, end: 20230827

REACTIONS (4)
  - Sepsis [Recovered/Resolved]
  - Fatigue [Not Recovered/Not Resolved]
  - Disturbance in attention [Recovered/Resolved]
  - Fatigue [None]

NARRATIVE: CASE EVENT DATE: 20230828
